FAERS Safety Report 5335457-5 (Version None)
Quarter: 2007Q2

REPORT INFORMATION
  Report Type: 
  Country: None (occurrence: None)
  Receive Date: 20070525
  Receipt Date: 20070516
  Transmission Date: 20071010
  Serious: Yes (Other)
  Sender: FDA-Public Use
  Company Number: US-PFIZER INC-2007040433

PATIENT
  Age: 65 Year
  Sex: Male

DRUGS (1)
  1. LYRICA [Suspect]

REACTIONS (1)
  - RASH [None]
